FAERS Safety Report 6595819-5 (Version None)
Quarter: 2010Q1

REPORT INFORMATION
  Report Type: 
  Country: None (occurrence: None)
  Receive Date: 20100219
  Receipt Date: 20100219
  Transmission Date: 20100710
  Serious: Yes (Life-Threatening)
  Sender: FDA-Public Use
  Company Number: None

PATIENT
  Age: 22 Year
  Sex: Male
  Weight: 63.5036 kg

DRUGS (2)
  1. TRAZODONE HCL [Suspect]
     Indication: BIPOLAR DISORDER
     Dosage: TRAZADONE 100MG 1X A DAY
     Dates: start: 20090520, end: 20090601
  2. TRILEPTAL [Suspect]
     Dosage: TRILEPTAL 3 MG 2-16 3X A DAY

REACTIONS (1)
  - SUICIDE ATTEMPT [None]
